FAERS Safety Report 9780181 (Version 2)
Quarter: 2014Q1

REPORT INFORMATION
  Report Type: Report from Study
  Country: FR (occurrence: FR)
  Receive Date: 20131223
  Receipt Date: 20140106
  Transmission Date: 20141002
  Serious: Yes (Death, Hospitalization)
  Sender: FDA-Public Use
  Company Number: PHHY2013FR150097

PATIENT
  Age: 71 Year
  Sex: Male
  Weight: 43 kg

DRUGS (3)
  1. SANDOSTATIN LAR [Suspect]
     Indication: ENDOCRINE NEOPLASM MALIGNANT
     Dosage: 30 MG, ONE INJECTION EVERY 4 WEEKS
     Route: 030
     Dates: start: 20130507
  2. MORPHINE [Concomitant]
     Indication: PALLIATIVE CARE
     Dosage: UNK UKN, UNK
  3. HYPNOVEL [Concomitant]
     Indication: PALLIATIVE CARE
     Dosage: UNK UKN, UNK

REACTIONS (2)
  - Malignant neoplasm progression [Fatal]
  - General physical health deterioration [Fatal]
